FAERS Safety Report 20232151 (Version 1)
Quarter: 2021Q4

REPORT INFORMATION
  Report Type: Spontaneous
  Country: DE (occurrence: DE)
  Receive Date: 20211227
  Receipt Date: 20211227
  Transmission Date: 20220304
  Serious: Yes (Hospitalization)
  Sender: FDA-Public Use
  Company Number: DE-ADRED-05289-02

PATIENT

DRUGS (27)
  1. FEBUXOSTAT [Suspect]
     Active Substance: FEBUXOSTAT
     Indication: Product used for unknown indication
     Dosage: 80 MG, 0-1-0-0
     Route: 065
  2. MIRTAZAPINE [Suspect]
     Active Substance: MIRTAZAPINE
     Indication: Product used for unknown indication
     Dosage: 15 MG, 0-0-0.5-0
     Route: 065
  3. MIRTAZAPINE [Suspect]
     Active Substance: MIRTAZAPINE
     Dosage: 7.5 MG, 0-0-0-1
     Route: 065
  4. HYDROCHLOROTHIAZIDE [Suspect]
     Active Substance: HYDROCHLOROTHIAZIDE
     Indication: Product used for unknown indication
     Dosage: 25 MG, 1-0-0-0
     Route: 065
  5. HYDROCHLOROTHIAZIDE [Suspect]
     Active Substance: HYDROCHLOROTHIAZIDE
     Route: 065
  6. HYDROCHLOROTHIAZIDE [Suspect]
     Active Substance: HYDROCHLOROTHIAZIDE
     Dosage: 12.5 MG, 1-0-0-0
     Route: 065
  7. TRULICITY [Suspect]
     Active Substance: DULAGLUTIDE
     Indication: Product used for unknown indication
     Dosage: 0.75 MG, DIENSTAGS
     Route: 065
  8. TORSEMIDE [Concomitant]
     Active Substance: TORSEMIDE
     Indication: Product used for unknown indication
     Dosage: 200 MG, 0.5-0-0.5-0
     Route: 065
  9. TORSEMIDE [Concomitant]
     Active Substance: TORSEMIDE
     Route: 065
  10. TORSEMIDE [Concomitant]
     Active Substance: TORSEMIDE
     Dosage: 50 MG, 1-1-0-0
     Route: 065
  11. LEVOTHYROXINE SODIUM [Concomitant]
     Active Substance: LEVOTHYROXINE SODIUM
     Indication: Product used for unknown indication
     Dosage: 100 MICRORAM, 1-0-0-0
     Route: 065
  12. MOVICOL [Concomitant]
     Active Substance: POLYETHYLENE GLYCOL 3350\POTASSIUM CHLORIDE\SODIUM BICARBONATE\SODIUM CHLORIDE
     Indication: Product used for unknown indication
     Dosage: 1-0-0-0
     Route: 065
  13. APIXABAN [Concomitant]
     Active Substance: APIXABAN
     Indication: Product used for unknown indication
     Dosage: 2.5 MG, 1-0-1-0
     Route: 065
  14. SIMVASTATIN [Concomitant]
     Active Substance: SIMVASTATIN
     Indication: Product used for unknown indication
     Dosage: 20 MG, 0-0-0-1
     Route: 065
  15. TOUJEO [Concomitant]
     Active Substance: INSULIN GLARGINE
     Indication: Product used for unknown indication
     Dosage: 27 IE, 0-0-1-0
     Route: 065
  16. TOUJEO [Concomitant]
     Active Substance: INSULIN GLARGINE
     Dosage: 10 IE, 0-0-10-0
     Route: 065
  17. BISOPROLOL [Concomitant]
     Active Substance: BISOPROLOL
     Indication: Product used for unknown indication
     Dosage: 5 MG, 0.5-0-0-0
     Route: 065
  18. BISOPROLOL [Concomitant]
     Active Substance: BISOPROLOL
     Dosage: 1-0-0-0
     Route: 065
  19. SPIRIVA [Concomitant]
     Active Substance: TIOTROPIUM BROMIDE MONOHYDRATE
     Indication: Product used for unknown indication
     Dosage: 18 MICROGRAM, 1-0-0-0
     Route: 065
  20. PANTOPRAZOLE [Concomitant]
     Active Substance: PANTOPRAZOLE
     Indication: Product used for unknown indication
     Dosage: 20 MG, 1-0-0-0
     Route: 065
  21. ASPIRIN [Concomitant]
     Active Substance: ASPIRIN
     Indication: Product used for unknown indication
     Dosage: 100 MG, 0-1-0-0
     Route: 065
  22. Foster 100/6Mikrogramm [Concomitant]
     Indication: Product used for unknown indication
     Dosage: 100/5 MICROGRAM, 1-0-1-0
     Route: 065
  23. POTASSIUM CITRATE [Concomitant]
     Active Substance: POTASSIUM CITRATE
     Indication: Product used for unknown indication
     Dosage: 2-0-1-0
     Route: 065
  24. PREGABALIN [Concomitant]
     Active Substance: PREGABALIN
     Indication: Product used for unknown indication
     Dosage: 75 MG, 1-0-1-0
     Route: 065
  25. NOVORAPID [Concomitant]
     Active Substance: INSULIN ASPART
     Indication: Product used for unknown indication
     Dosage: NACH WERT
     Route: 065
  26. NALOXONE HYDROCHLORIDE\TILIDINE HYDROCHLORIDE [Concomitant]
     Active Substance: NALOXONE HYDROCHLORIDE\TILIDINE HYDROCHLORIDE
     Indication: Product used for unknown indication
     Dosage: 4/50 MG, 1-0-1-0
     Route: 065
  27. METAMIZOLE [Concomitant]
     Active Substance: METAMIZOLE
     Indication: Product used for unknown indication
     Dosage: 30 TROPFEN, 1-1-1-1
     Route: 065

REACTIONS (7)
  - Systemic infection [Unknown]
  - Abdominal pain lower [Recovering/Resolving]
  - Abdominal pain [Recovering/Resolving]
  - Flank pain [Unknown]
  - Nausea [Unknown]
  - Pain [Unknown]
  - Renal impairment [Unknown]
